FAERS Safety Report 8379843-8 (Version None)
Quarter: 2012Q2

REPORT INFORMATION
  Report Type: 
  Country: None (occurrence: None)
  Receive Date: 20120523
  Receipt Date: 20120510
  Transmission Date: 20120825
  Serious: No
  Sender: FDA-Public Use
  Company Number: US-ASTRAZENECA-2012SE21821

PATIENT
  Sex: Female

DRUGS (4)
  1. OTHER MEDICINES [Concomitant]
  2. SYMBICORT [Suspect]
     Dosage: 80/4.5 MCG ONE PUFF TWICE DAILY
     Route: 055
  3. SYMBICORT [Suspect]
     Dosage: 160/4.5 MCG TWO PUFFS TWICE DAILY
     Route: 055
  4. SYMBICORT [Suspect]
     Dosage: 160/4.5 MCG ONE PUFF TWICE DAILY
     Route: 055

REACTIONS (2)
  - OFF LABEL USE [None]
  - NERVOUSNESS [None]
